FAERS Safety Report 10623230 (Version 1)
Quarter: 2014Q4

REPORT INFORMATION
  Report Type: Spontaneous
  Country: DE (occurrence: DE)
  Receive Date: 20141203
  Receipt Date: 20141203
  Transmission Date: 20150529
  Serious: Yes (Congenital Anomaly)
  Sender: FDA-Public Use
  Company Number: DE-GLAXOSMITHKLINE-DE2014029009

PATIENT

DRUGS (4)
  1. L-THYROXIN [Concomitant]
     Active Substance: LEVOTHYROXINE SODIUM
     Indication: AUTOIMMUNE THYROIDITIS
     Dosage: 75 [?G/D ]/ 50 ?G/D UNTIL GW 35, THAN INCREASED TO 75 ?G/D
     Route: 064
     Dates: start: 20131112, end: 20140829
  2. FOLIO [Concomitant]
     Active Substance: FOLIC ACID
     Indication: PROPHYLAXIS OF NEURAL TUBE DEFECT
     Dosage: 0.8 [MG/D ]/ +PREC., UND FEMIBION 1, GYNVITAL GRAVIDA
     Route: 064
     Dates: start: 20131112, end: 20140829
  3. INFLUENZA VACCINE [Concomitant]
     Active Substance: INFLUENZA VIRUS VACCINE
     Indication: IMMUNISATION
     Dosage: PRECONCEPT. 6+4 GW (OCTOBER 2013)
     Route: 064
  4. ELONTRIL [Suspect]
     Active Substance: BUPROPION HYDROCHLORIDE
     Indication: DEPRESSION
     Dosage: 150 [MG/D ]
     Route: 064
     Dates: start: 20131112, end: 20140829

REACTIONS (2)
  - Naevus flammeus [Not Recovered/Not Resolved]
  - Haemangioma congenital [Not Recovered/Not Resolved]

NARRATIVE: CASE EVENT DATE: 20140829
